FAERS Safety Report 14070914 (Version 1)
Quarter: 2017Q4

REPORT INFORMATION
  Report Type: Spontaneous
  Country: US (occurrence: US)
  Receive Date: 20171010
  Receipt Date: 20171010
  Transmission Date: 20180321
  Serious: Yes (Other)
  Sender: FDA-Public Use
  Company Number: US-JNJFOC-20170828314

PATIENT

DRUGS (1)
  1. IMBRUVICA [Suspect]
     Active Substance: IBRUTINIB
     Indication: PRODUCT USED FOR UNKNOWN INDICATION
     Route: 065

REACTIONS (6)
  - Diarrhoea [Unknown]
  - Anaemia [Unknown]
  - Leukopenia [Unknown]
  - Septic shock [Recovered/Resolved with Sequelae]
  - Varicella [Recovered/Resolved with Sequelae]
  - Neutropenia [Unknown]

NARRATIVE: CASE EVENT DATE: 20150218
